FAERS Safety Report 7029103-2 (Version None)
Quarter: 2010Q4

REPORT INFORMATION
  Report Type: 
  Country: None (occurrence: None)
  Receive Date: 20101005
  Receipt Date: 20101001
  Transmission Date: 20110411
  Serious: Yes (Hospitalization)
  Sender: FDA-Public Use
  Company Number: Z0002815A

PATIENT
  Sex: Female

DRUGS (5)
  1. LAPATINIB [Suspect]
     Dosage: 1250MG PER DAY
     Route: 048
     Dates: start: 20091216
  2. CAPECITABINE [Suspect]
     Dosage: 2000MGM2 CYCLIC
     Route: 048
     Dates: start: 20091216
  3. LACTULOSE [Concomitant]
     Indication: CONSTIPATION
     Dosage: 15ML TWICE PER DAY
     Route: 048
     Dates: start: 20100105
  4. ASPIRIN [Concomitant]
     Dosage: 100MG PER DAY
     Route: 048
     Dates: start: 20080516
  5. OMEPRAZOLE [Concomitant]
     Indication: PROPHYLAXIS
     Dosage: 20MG PER DAY
     Route: 048
     Dates: start: 20100108

REACTIONS (1)
  - NEUROLOGICAL DECOMPENSATION [None]
